FAERS Safety Report 19212858 (Version 1)
Quarter: 2021Q2

REPORT INFORMATION
  Report Type: Spontaneous
  Country: US (occurrence: US)
  Receive Date: 20210504
  Receipt Date: 20210504
  Transmission Date: 20210717
  Serious: Yes (Death, Other)
  Sender: FDA-Public Use
  Company Number: US-AMGEN-USASP2021066513

PATIENT
  Age: 73 Year
  Sex: Male

DRUGS (2)
  1. BLINCYTO [Suspect]
     Active Substance: BLINATUMOMAB
     Dosage: 48?HOURS (21.25 MCG/250 ML AT 5 ML)
     Route: 042
     Dates: start: 20210422, end: 20210422
  2. BLINCYTO [Suspect]
     Active Substance: BLINATUMOMAB
     Indication: CHRONIC LEUKAEMIA
     Dosage: 9 MICROGRAM, QD,24?HOURS (10.375 MCG BLINCYTO IN 250 ML AT 10 ML/HOUR)
     Route: 042
     Dates: start: 20210421, end: 202104

REACTIONS (2)
  - Off label use [Unknown]
  - Death [Fatal]

NARRATIVE: CASE EVENT DATE: 20210421
